FAERS Safety Report 20616534 (Version 1)
Quarter: 2022Q1

REPORT INFORMATION
  Report Type: Spontaneous
  Country: IR (occurrence: IR)
  Receive Date: 20220321
  Receipt Date: 20220321
  Transmission Date: 20220423
  Serious: Yes (Death, Hospitalization)
  Sender: FDA-Public Use
  Company Number: IR-MYLANLABS-2022M1020913

PATIENT
  Age: 21 Year
  Sex: Female

DRUGS (13)
  1. EPINEPHRINE [Suspect]
     Active Substance: EPINEPHRINE
     Indication: Cardiogenic shock
     Dosage: UNK, DRIP
  2. ACETAMINOPHEN [Suspect]
     Active Substance: ACETAMINOPHEN
     Indication: Pyrexia
     Dosage: UNK
     Route: 042
  3. ATROPINE [Suspect]
     Active Substance: ATROPINE
     Indication: Cardiogenic shock
     Dosage: UNK
     Route: 065
  4. OXYTOCIN [Concomitant]
     Active Substance: OXYTOCIN
     Indication: Prophylaxis
     Dosage: 30 INTERNATIONAL UNIT
     Route: 042
  5. OXYTOCIN [Concomitant]
     Active Substance: OXYTOCIN
     Indication: Postpartum haemorrhage
  6. OXYTOCIN [Concomitant]
     Active Substance: OXYTOCIN
     Indication: Hypotonia
  7. SODIUM CHLORIDE [Concomitant]
     Active Substance: SODIUM CHLORIDE
     Indication: Prophylaxis
     Dosage: 500 MILLILITER
     Route: 042
  8. LIDOCAINE [Concomitant]
     Active Substance: LIDOCAINE
     Indication: Supraventricular tachycardia
     Dosage: 100 MILLIGRAM, INITIAL DOSE
     Route: 042
  9. LIDOCAINE [Concomitant]
     Active Substance: LIDOCAINE
     Dosage: 4 MILLIGRAM, QMINUTE; MAINTENANCE DOSE
     Route: 042
  10. FUROSEMIDE [Concomitant]
     Active Substance: FUROSEMIDE
     Indication: Pulmonary oedema
     Dosage: 300 MILLIGRAM; INITIAL DOSE
     Route: 065
  11. FUROSEMIDE [Concomitant]
     Active Substance: FUROSEMIDE
     Dosage: UNK UNK, QH; 2 TO 4 MG PER HOUR; MAINTENANCE DOSE
     Route: 065
  12. FENTANYL [Concomitant]
     Active Substance: FENTANYL
     Indication: Drug therapy
     Dosage: UNK; DRIP
  13. MIDAZOLAM [Concomitant]
     Active Substance: MIDAZOLAM
     Indication: Drug therapy
     Dosage: UNK
     Route: 065

REACTIONS (1)
  - Drug ineffective [Fatal]
